FAERS Safety Report 4531804-2 (Version None)
Quarter: 2004Q4

REPORT INFORMATION
  Report Type: 
  Country: None (occurrence: None)
  Receive Date: 20041220
  Receipt Date: 20041125
  Transmission Date: 20050328
  Serious: Yes (Death)
  Sender: FDA-Public Use
  Company Number: JP-MERCK-0411USA04069

PATIENT
  Age: 28 Day

DRUGS (1)
  1. DECADRON [Suspect]
     Indication: LUNG DISORDER
     Route: 048

REACTIONS (2)
  - ADRENAL INSUFFICIENCY [None]
  - LUNG DISORDER [None]
